FAERS Safety Report 6338339-5 (Version None)
Quarter: 2009Q3

REPORT INFORMATION
  Report Type: 
  Country: None (occurrence: None)
  Receive Date: 20090902
  Receipt Date: 20090831
  Transmission Date: 20100115
  Serious: Yes (Hospitalization)
  Sender: FDA-Public Use
  Company Number: BE-ABBOTT-09P-013-0591675-00

PATIENT
  Sex: Female

DRUGS (3)
  1. HUMIRA [Suspect]
     Indication: RHEUMATOID ARTHRITIS
     Dates: start: 20070401
  2. LEDERTREXATE [Concomitant]
     Indication: RHEUMATOID ARTHRITIS
     Dates: start: 19900901
  3. LEFLUNOMIDE [Concomitant]
     Indication: RHEUMATOID ARTHRITIS
     Dates: start: 20060401

REACTIONS (5)
  - CEREBRAL INFARCTION [None]
  - GENERAL PHYSICAL HEALTH DETERIORATION [None]
  - HYPOVOLAEMIC SHOCK [None]
  - RENAL FAILURE [None]
  - SHOCK HAEMORRHAGIC [None]
